FAERS Safety Report 5773412-1 (Version None)
Quarter: 2008Q2

REPORT INFORMATION
  Report Type: 
  Country: None (occurrence: None)
  Receive Date: 20080616
  Receipt Date: 20080605
  Transmission Date: 20081010
  Serious: Yes (Other)
  Sender: FDA-Public Use
  Company Number: BR-ASTRAZENECA-2008UW06215

PATIENT
  Age: 21 Year
  Sex: Female

DRUGS (1)
  1. XYLOCAINE 5% [Suspect]
     Indication: TOOTHACHE
     Route: 061
     Dates: start: 20080301

REACTIONS (2)
  - ABORTION SPONTANEOUS [None]
  - DRUG EXPOSURE DURING PREGNANCY [None]
